FAERS Safety Report 9669593 (Version 1)
Quarter: 2013Q4

REPORT INFORMATION
  Report Type: Report from Study
  Country: MX (occurrence: MX)
  Receive Date: 20131105
  Receipt Date: 20131105
  Transmission Date: 20140711
  Serious: Yes (Other)
  Sender: FDA-Public Use
  Company Number: PHHY2013MX125294

PATIENT
  Age: 77 Year
  Sex: Female

DRUGS (3)
  1. CO-DIOVAN [Suspect]
     Indication: HYPERTENSION
     Dosage: 1 TABLET (160/ 12.5 MG) DAILY
     Route: 048
  2. CO-DIOVAN [Suspect]
     Dosage: HALF TABLET (160/ 12.5 MG)IN THE MORNING AND HALF AT NIGHT
     Route: 048
  3. NIFEDIPINE [Concomitant]
     Dosage: 1 DF, UNK
     Dates: start: 20131002

REACTIONS (2)
  - Cerebral haemorrhage [Recovered/Resolved]
  - Wrong technique in drug usage process [Unknown]
